FAERS Safety Report 7802757-6 (Version None)
Quarter: 2011Q4

REPORT INFORMATION
  Report Type: 
  Country: None (occurrence: None)
  Receive Date: 20111007
  Receipt Date: 20110929
  Transmission Date: 20120403
  Serious: Yes (Death)
  Sender: FDA-Public Use
  Company Number: GXBR2011US04817

PATIENT
  Age: 16 Year
  Sex: Female

DRUGS (4)
  1. AMITRIPTYLINE HCL [Suspect]
     Dosage: UNK DF, UNK
  2. OXYCODONE HCL [Suspect]
     Dosage: UNK DF, UNK
  3. GABAPENTIN [Suspect]
     Dosage: UNK DF, UNK
  4. CYCLOBENZAPRINE HCL [Suspect]
     Dosage: UNK DF, UNK

REACTIONS (2)
  - COMPLETED SUICIDE [None]
  - MULTIPLE DRUG OVERDOSE [None]
